FAERS Safety Report 12690098 (Version 1)
Quarter: 2016Q3

REPORT INFORMATION
  Report Type: Spontaneous
  Country: US (occurrence: US)
  Receive Date: 20160826
  Receipt Date: 20160826
  Transmission Date: 20161109
  Serious: No
  Sender: FDA-Public Use
  Company Number: US-BAYER-2016-162802

PATIENT
  Age: 63 Year
  Sex: Female
  Weight: 68.27 kg

DRUGS (1)
  1. MIRALAX [Suspect]
     Active Substance: POLYETHYLENE GLYCOL 3350
     Indication: DYSPEPSIA
     Dosage: 1 DF, QD WITH4 TO 8 OUNCES OF WATER
     Route: 048
     Dates: start: 2016

REACTIONS (2)
  - Product use issue [None]
  - Off label use [None]
